FAERS Safety Report 11052741 (Version 4)
Quarter: 2016Q3

REPORT INFORMATION
  Report Type: Spontaneous
  Country: US (occurrence: US)
  Receive Date: 20150421
  Receipt Date: 20160830
  Transmission Date: 20161109
  Serious: Yes (Disabling, Other)
  Sender: FDA-Public Use
  Company Number: US-JNJFOC-20150220376

PATIENT
  Age: 31 Year
  Sex: Male
  Weight: 61.69 kg

DRUGS (1)
  1. RISPERDAL CONSTA [Suspect]
     Active Substance: RISPERIDONE
     Indication: SCHIZOPHRENIA
     Route: 030

REACTIONS (5)
  - Treatment noncompliance [Unknown]
  - Accidental exposure to product [Unknown]
  - Schizophrenia [Recovered/Resolved]
  - Underdose [Unknown]
  - Needle issue [Unknown]

NARRATIVE: CASE EVENT DATE: 20150224
